FAERS Safety Report 13489969 (Version 1)
Quarter: 2017Q2

REPORT INFORMATION
  Report Type: Spontaneous
  Country: US (occurrence: US)
  Receive Date: 20170427
  Receipt Date: 20170427
  Transmission Date: 20170830
  Serious: Yes (Hospitalization, Other)
  Sender: FDA-Public Use
  Company Number: US-SA-2016SA007963

PATIENT
  Age: 63 Year
  Sex: Female

DRUGS (7)
  1. SEVELAMER SALT NOT SPECIFIED [Suspect]
     Active Substance: SEVELAMER
     Route: 065
  2. SODIUM THIOSULFATE [Suspect]
     Active Substance: SODIUM THIOSULFATE
     Indication: CALCIPHYLAXIS
     Dosage: INFUSIONS
     Route: 042
  3. WARFARIN SODIUM. [Suspect]
     Active Substance: WARFARIN SODIUM
     Indication: ATRIAL FIBRILLATION
     Route: 065
  4. ACETYLSALICYLIC ACID [Concomitant]
     Active Substance: ASPIRIN
     Indication: ANTIPLATELET THERAPY
     Route: 065
  5. ALENDRONATE [Suspect]
     Active Substance: ALENDRONATE SODIUM
     Indication: CALCIPHYLAXIS
     Route: 065
  6. SPIRONOLACTONE. [Concomitant]
     Active Substance: SPIRONOLACTONE
  7. SODIUM THIOSULFATE [Suspect]
     Active Substance: SODIUM THIOSULFATE
     Indication: CALCIPHYLAXIS
     Dosage: INFUSIONS
     Route: 042

REACTIONS (12)
  - Pain [Recovering/Resolving]
  - Cellulitis [Unknown]
  - Skin necrosis [Recovering/Resolving]
  - Skin ulcer [Recovering/Resolving]
  - Calciphylaxis [Recovering/Resolving]
  - Erythema [Unknown]
  - Skin discolouration [Recovering/Resolving]
  - Oedema peripheral [Unknown]
  - Swelling [Recovering/Resolving]
  - International normalised ratio increased [Unknown]
  - Protein S decreased [Unknown]
  - Product use in unapproved indication [Unknown]
